FAERS Safety Report 5522421-6 (Version None)
Quarter: 2007Q4

REPORT INFORMATION
  Report Type: 
  Country: None (occurrence: None)
  Receive Date: 20071120
  Receipt Date: 20071109
  Transmission Date: 20080405
  Serious: Yes (Other)
  Sender: FDA-Public Use
  Company Number: HQWYE179918MAR05

PATIENT
  Sex: Female
  Weight: 63.56 kg

DRUGS (3)
  1. PREMPRO [Suspect]
     Dosage: UNSPECIFIED
     Route: 048
     Dates: start: 19940101, end: 19960101
  2. MEDROXYPROGESTERONE ACETATE [Suspect]
  3. PREMARIN [Suspect]
     Dosage: UNSPECIFIED
     Route: 048
     Dates: start: 19941001, end: 19960701

REACTIONS (2)
  - BREAST CANCER METASTATIC [None]
  - DEEP VEIN THROMBOSIS [None]
